FAERS Safety Report 20048763 (Version 2)
Quarter: 2021Q4

REPORT INFORMATION
  Report Type: Spontaneous
  Country: ES (occurrence: ES)
  Receive Date: 20211109
  Receipt Date: 20211124
  Transmission Date: 20220303
  Serious: Yes (Death, Life-Threatening, Hospitalization)
  Sender: FDA-Public Use
  Company Number: ES-CELGENE-ESP-20211101712

PATIENT
  Age: 81 Year
  Sex: Male
  Weight: 55 kg

DRUGS (4)
  1. AZACITIDINE [Suspect]
     Active Substance: AZACITIDINE
     Indication: Acute myeloid leukaemia
     Route: 058
     Dates: start: 20200316
  2. AZACITIDINE [Suspect]
     Active Substance: AZACITIDINE
     Dosage: 118.5
     Route: 058
     Dates: start: 20211029
  3. PEVONEDISTAT [Suspect]
     Active Substance: PEVONEDISTAT
     Indication: Acute myeloid leukaemia
     Dosage: 31.6 MILLIGRAM
     Route: 041
     Dates: start: 20200316
  4. PEVONEDISTAT [Suspect]
     Active Substance: PEVONEDISTAT
     Route: 041
     Dates: start: 20211029

REACTIONS (1)
  - Leukostasis syndrome [Fatal]

NARRATIVE: CASE EVENT DATE: 20211029
